FAERS Safety Report 20668845 (Version 1)
Quarter: 2022Q2

REPORT INFORMATION
  Report Type: Spontaneous
  Country: CA (occurrence: CA)
  Receive Date: 20220404
  Receipt Date: 20220404
  Transmission Date: 20220721
  Serious: Yes (Hospitalization, Other)
  Sender: FDA-Public Use
  Company Number: None

PATIENT
  Sex: Female

DRUGS (3)
  1. ESCITALOPRAM [Suspect]
     Active Substance: ESCITALOPRAM OXALATE
     Indication: Anxiety
     Route: 065
  2. EXTRANEAL [Suspect]
     Active Substance: CALCIUM CHLORIDE\ICODEXTRIN\MAGNESIUM CHLORIDE\SODIUM CHLORIDE\SODIUM LACTATE
     Indication: Peritoneal dialysis
     Dosage: SOLUTION INTRAPERITONEAL
     Route: 033
  3. DIANEAL [Suspect]
     Active Substance: CALCIUM CHLORIDE\DEXTROSE\MAGNESIUM CHLORIDE\SODIUM CHLORIDE\SODIUM LACTATE
     Indication: Peritoneal dialysis
     Dosage: SOLUTION DIALYSIS, SOLUTION FOR PERITONEAL DIALYSIS
     Route: 033

REACTIONS (15)
  - Hypotension [Recovered/Resolved]
  - Anxiety [Recovered/Resolved]
  - Cardiac disorder [Recovered/Resolved]
  - Confusional state [Recovered/Resolved]
  - Contusion [Recovered/Resolved]
  - Coronary artery occlusion [Recovered/Resolved]
  - Fall [Unknown]
  - Haemorrhage [Recovered/Resolved]
  - Head injury [Recovered/Resolved]
  - Mass [Recovered/Resolved]
  - Mental impairment [Recovered/Resolved]
  - Pain [Recovered/Resolved]
  - Post concussion syndrome [Recovered/Resolved]
  - Syncope [Recovered/Resolved]
  - Tremor [Recovered/Resolved]
